FAERS Safety Report 7263025-7 (Version None)
Quarter: 2011Q1

REPORT INFORMATION
  Report Type: 
  Country: None (occurrence: None)
  Receive Date: 20110130
  Receipt Date: 20100928
  Transmission Date: 20110831
  Serious: Yes (Other)
  Sender: FDA-Public Use
  Company Number: US-ABBOTT-10P-163-0672766-00

PATIENT
  Sex: Female
  Weight: 65.83 kg

DRUGS (2)
  1. LASIX [Concomitant]
     Indication: PRODUCT USED FOR UNKNOWN INDICATION
     Route: 048
  2. HUMIRA [Suspect]
     Indication: PSORIASIS
     Route: 058
     Dates: start: 20080101, end: 20100907

REACTIONS (4)
  - PSORIASIS [None]
  - CARDIAC FAILURE CONGESTIVE [None]
  - WHEEZING [None]
  - JOINT SWELLING [None]
